FAERS Safety Report 23301264 (Version 1)
Quarter: 2023Q4

REPORT INFORMATION
  Report Type: Spontaneous
  Country: US (occurrence: US)
  Receive Date: 20231215
  Receipt Date: 20231215
  Transmission Date: 20240110
  Serious: Yes (Other)
  Sender: FDA-Public Use
  Company Number: US-MLMSERVICE-20231128-4691593-1

PATIENT
  Age: 4 Decade
  Sex: Female

DRUGS (9)
  1. ARIPIPRAZOLE [Suspect]
     Active Substance: ARIPIPRAZOLE
     Indication: Major depression
     Dosage: UNKNOWN
     Route: 065
  2. CYCLOPHOSPHAMIDE [Suspect]
     Active Substance: CYCLOPHOSPHAMIDE
     Indication: Acute lymphocytic leukaemia
     Dosage: UNKNOWN
     Route: 065
  3. DASATINIB [Suspect]
     Active Substance: DASATINIB
     Indication: Philadelphia chromosome positive
     Dosage: UNKNOWN
     Route: 065
  4. DEXAMETHASONE [Suspect]
     Active Substance: DEXAMETHASONE
     Indication: Philadelphia chromosome positive
     Dosage: UNKNOWN
     Route: 065
  5. METHOTREXATE [Suspect]
     Active Substance: METHOTREXATE
     Indication: Philadelphia chromosome positive
     Dosage: UNKNOWN
     Route: 065
  6. RITUXIMAB [Suspect]
     Active Substance: RITUXIMAB
     Indication: Philadelphia chromosome positive
     Dosage: UNKNOWN
     Route: 065
  7. VINCRISTINE [Suspect]
     Active Substance: VINCRISTINE
     Indication: Acute lymphocytic leukaemia
     Dosage: UNKNOWN
     Route: 065
  8. ADRIAMYCIN [Suspect]
     Active Substance: DOXORUBICIN HYDROCHLORIDE
     Indication: Acute lymphocytic leukaemia
     Dosage: UNKNOWN
     Route: 065
  9. ADALIMUMAB [Concomitant]
     Active Substance: ADALIMUMAB\ISOPROPYL ALCOHOL
     Indication: Crohn^s disease
     Dosage: UNKNOWN
     Route: 065

REACTIONS (4)
  - Enterococcal infection [Recovered/Resolved]
  - Febrile neutropenia [Unknown]
  - Vascular device infection [Recovered/Resolved]
  - Enterococcal bacteraemia [Recovered/Resolved]
